FAERS Safety Report 23209460 (Version 1)
Quarter: 2023Q4

REPORT INFORMATION
  Report Type: Spontaneous
  Country: SI (occurrence: SI)
  Receive Date: 20231121
  Receipt Date: 20231121
  Transmission Date: 20240109
  Serious: Yes (Other)
  Sender: FDA-Public Use
  Company Number: SI-BAYER-2023A164810

PATIENT
  Age: 85 Year
  Sex: Male

DRUGS (6)
  1. RIVAROXABAN [Suspect]
     Active Substance: RIVAROXABAN
     Indication: Atrial fibrillation
     Route: 048
  2. PERINDOPRIL [Concomitant]
     Active Substance: PERINDOPRIL
  3. BISOPROLOL [Concomitant]
     Active Substance: BISOPROLOL\BISOPROLOL FUMARATE
  4. FUROSEMIDE [Concomitant]
     Active Substance: FUROSEMIDE
  5. EMPAGLIFLOZIN [Concomitant]
     Active Substance: EMPAGLIFLOZIN
  6. DICLOFENAC [Concomitant]
     Active Substance: DICLOFENAC

REACTIONS (9)
  - Syncope [Unknown]
  - Transient ischaemic attack [Unknown]
  - Nausea [Unknown]
  - Dizziness [Unknown]
  - Contusion [Unknown]
  - Asthenia [Unknown]
  - Confusional state [Unknown]
  - Microcytic anaemia [Recovered/Resolved]
  - Faeces discoloured [Recovered/Resolved]
